FAERS Safety Report 24218408 (Version 2)
Quarter: 2024Q3

REPORT INFORMATION
  Report Type: Spontaneous
  Country: US (occurrence: US)
  Receive Date: 20240816
  Receipt Date: 20240925
  Transmission Date: 20241017
  Serious: No
  Sender: BIOVITRUM
  Company Number: US-BIOVITRUM-2024-US-010896

PATIENT
  Age: 74 Year
  Sex: Male

DRUGS (8)
  1. VONJO [Suspect]
     Active Substance: PACRITINIB
     Indication: Polycythaemia vera
     Dosage: TWICE DAILY
     Route: 048
     Dates: start: 20240812
  2. VONJO [Suspect]
     Active Substance: PACRITINIB
     Dosage: (2 CAPSULES) TWICE DAILY
     Route: 048
     Dates: start: 20240812
  3. ZINC SULFATE [Concomitant]
     Active Substance: ZINC SULFATE
     Indication: Product used for unknown indication
  4. SYSTANE (HYPROMELLOSE 2910 (4000 MPA.S)) [Concomitant]
     Active Substance: HYPROMELLOSE 2910 (4000 MPA.S)
     Indication: Product used for unknown indication
  5. GENTAMICIN [Concomitant]
     Active Substance: GENTAMICIN
     Indication: Product used for unknown indication
  6. CLOBETASOL [Concomitant]
     Active Substance: CLOBETASOL
     Indication: Product used for unknown indication
  7. CIPROFLOXACIN [Concomitant]
     Active Substance: CIPROFLOXACIN
     Indication: Product used for unknown indication
  8. BACLOFEN [Concomitant]
     Active Substance: BACLOFEN
     Indication: Product used for unknown indication

REACTIONS (6)
  - Off label use [Not Recovered/Not Resolved]
  - Fatigue [Unknown]
  - Tongue erythema [Unknown]
  - Glossodynia [Unknown]
  - Tongue discolouration [Unknown]
  - Wound infection [Unknown]

NARRATIVE: CASE EVENT DATE: 20240812
